FAERS Safety Report 6430283-8 (Version None)
Quarter: 2009Q4

REPORT INFORMATION
  Report Type: 
  Country: None (occurrence: None)
  Receive Date: 20091105
  Receipt Date: 20091105
  Transmission Date: 20100525
  Serious: Yes (Other)
  Sender: FDA-Public Use
  Company Number: None

PATIENT
  Sex: Male
  Weight: 35.6 kg

DRUGS (1)
  1. TOPIRAMATE 15 MG CAPSULE [Suspect]
     Indication: EPILEPSY
     Dosage: 1 PO BID
     Route: 048
     Dates: start: 20080601

REACTIONS (1)
  - NO ADVERSE EVENT [None]
